FAERS Safety Report 20531168 (Version 1)
Quarter: 2022Q1

REPORT INFORMATION
  Report Type: Spontaneous
  Country: BR (occurrence: BR)
  Receive Date: 20220301
  Receipt Date: 20220301
  Transmission Date: 20220423
  Serious: Yes (Other)
  Sender: FDA-Public Use
  Company Number: BR-GILEAD-2022-0570868

PATIENT
  Age: 55 Year
  Sex: Female

DRUGS (3)
  1. VIREAD [Suspect]
     Active Substance: TENOFOVIR DISOPROXIL FUMARATE
     Indication: HIV infection
     Dosage: UNK
     Route: 065
  2. ZIDOVUDINE [Concomitant]
     Active Substance: ZIDOVUDINE
  3. LAMIVUDINE [Concomitant]
     Active Substance: LAMIVUDINE

REACTIONS (7)
  - Chronic kidney disease [Recovering/Resolving]
  - Multiple fractures [Unknown]
  - Acute kidney injury [Recovering/Resolving]
  - Fanconi syndrome acquired [Recovering/Resolving]
  - Hyperparathyroidism secondary [Unknown]
  - Nephropathy toxic [Recovering/Resolving]
  - Bone disorder [Unknown]
